FAERS Safety Report 21130779 (Version 3)
Quarter: 2022Q4

REPORT INFORMATION
  Report Type: Report from Study
  Country: US (occurrence: US)
  Receive Date: 20220726
  Receipt Date: 20221223
  Transmission Date: 20230113
  Serious: Yes (Hospitalization, Other)
  Sender: FDA-Public Use
  Company Number: US-TAKEDA-2022TUS022549

PATIENT
  Age: 60 Year
  Sex: Female

DRUGS (2)
  1. VEDOLIZUMAB [Suspect]
     Active Substance: VEDOLIZUMAB
     Indication: Crohn^s disease
     Dosage: 300 MILLIGRAM
     Route: 042
     Dates: start: 20220331
  2. VEDOLIZUMAB [Suspect]
     Active Substance: VEDOLIZUMAB
     Indication: Colitis ulcerative
     Dosage: 300 MILLIGRAM, Q6WEEKS
     Route: 042

REACTIONS (19)
  - Impaired gastric emptying [Not Recovered/Not Resolved]
  - Abdominal distension [Recovered/Resolved]
  - Nausea [Recovered/Resolved]
  - Muscle twitching [Recovered/Resolved]
  - Oropharyngeal discomfort [Recovered/Resolved]
  - Glossodynia [Recovering/Resolving]
  - Feeling jittery [Recovered/Resolved]
  - Ear pain [Recovering/Resolving]
  - Nasal congestion [Recovering/Resolving]
  - Headache [Recovering/Resolving]
  - Arthralgia [Recovered/Resolved]
  - Back pain [Recovered/Resolved]
  - Oropharyngeal pain [Recovering/Resolving]
  - Fatigue [Recovered/Resolved]
  - Feeling hot [Recovered/Resolved]
  - Abdominal pain [Not Recovered/Not Resolved]
  - Pain in extremity [Not Recovered/Not Resolved]
  - Inappropriate schedule of product administration [Recovered/Resolved]
  - Off label use [Unknown]

NARRATIVE: CASE EVENT DATE: 20220401
